FAERS Safety Report 8136583-8 (Version None)
Quarter: 2012Q1

REPORT INFORMATION
  Report Type: 
  Country: None (occurrence: None)
  Receive Date: 20120209
  Receipt Date: 20120206
  Transmission Date: 20120608
  Serious: Yes (Death, Hospitalization)
  Sender: FDA-Public Use
  Company Number: 2012SP006961

PATIENT
  Age: 54 Year
  Sex: Female
  Weight: 36.1 kg

DRUGS (1)
  1. TEMODAL [Suspect]
     Indication: ASTROCYTOMA
     Dosage: 75 MG/M2; QD; INDRP
     Route: 041
     Dates: start: 20100701, end: 20100717

REACTIONS (4)
  - NEOPLASM PROGRESSION [None]
  - HEPATIC FUNCTION ABNORMAL [None]
  - BRAIN NEOPLASM [None]
  - RESPIRATORY DISTRESS [None]
